FAERS Safety Report 18700844 (Version 1)
Quarter: 2021Q1

REPORT INFORMATION
  Report Type: Spontaneous
  Country: US (occurrence: US)
  Receive Date: 20210104
  Receipt Date: 20210104
  Transmission Date: 20210419
  Serious: Yes (Other)
  Sender: FDA-Public Use
  Company Number: None

PATIENT
  Age: 87 Year
  Sex: Male
  Weight: 81.45 kg

DRUGS (19)
  1. GLIPIZIDE 5MG [Concomitant]
     Active Substance: GLIPIZIDE
  2. CLOPIDOGREL [Concomitant]
     Active Substance: CLOPIDOGREL BISULFATE
  3. TYLENOL PM [Concomitant]
     Active Substance: ACETAMINOPHEN\DIPHENHYDRAMINE
  4. SUMATRIPTAN 50MG [Concomitant]
     Active Substance: SUMATRIPTAN
  5. OMPERAZOLE 20MG [Concomitant]
  6. ATORVASTATIN 20MG [Concomitant]
     Active Substance: ATORVASTATIN
  7. LATANOPROST OPTH [Concomitant]
  8. BRINZOLAMIDE OPTH [Concomitant]
  9. OMEGA 3 1,000MG [Concomitant]
  10. ISOSORBIDE MONONITRATE 30MG [Concomitant]
     Active Substance: ISOSORBIDE MONONITRATE
  11. AMLODIPINE [Concomitant]
     Active Substance: AMLODIPINE BESYLATE
  12. LISINOPRIL. [Concomitant]
     Active Substance: LISINOPRIL
  13. ASPIRIN 81MG [Concomitant]
     Active Substance: ASPIRIN
  14. LOMOTIL 2.5 [Concomitant]
  15. ALLOPURINOL 300MG [Concomitant]
     Active Substance: ALLOPURINOL
  16. JANUVIA [Suspect]
     Active Substance: SITAGLIPTIN PHOSPHATE
     Indication: TYPE 2 DIABETES MELLITUS
     Route: 048
     Dates: start: 20170829, end: 20210101
  17. DORZOLAMIDE OPTH [Concomitant]
  18. PROAIR HFA [Concomitant]
     Active Substance: ALBUTEROL SULFATE
  19. NITROGLYCERIN 0.4MG SL [Concomitant]

REACTIONS (5)
  - Oedema peripheral [None]
  - Peripheral swelling [None]
  - Heart rate [None]
  - Hypertension [None]
  - Urine output decreased [None]

NARRATIVE: CASE EVENT DATE: 20210101
